FAERS Safety Report 9292908 (Version 1)
Quarter: 2013Q2

REPORT INFORMATION
  Report Type: Spontaneous
  Country: FR (occurrence: FR)
  Receive Date: 20130516
  Receipt Date: 20130516
  Transmission Date: 20140414
  Serious: Yes (Hospitalization)
  Sender: FDA-Public Use
  Company Number: FR-PFIZER INC-2005106618

PATIENT
  Age: 81 Year
  Sex: Male
  Weight: 76 kg

DRUGS (9)
  1. AMLOR [Suspect]
     Indication: ILL-DEFINED DISORDER
     Dosage: 1 DF, 1X/DAY
     Route: 048
     Dates: start: 20050118
  2. INIPOMP [Suspect]
     Dosage: 20 MG, 1X/DAY
     Route: 048
     Dates: start: 20050118
  3. KARDEGIC [Suspect]
     Indication: ILL-DEFINED DISORDER
     Dosage: 160 MG, 1X/DAY
     Route: 048
     Dates: start: 20050118
  4. ZECLAR [Suspect]
     Indication: ILL-DEFINED DISORDER
     Route: 048
     Dates: start: 20050524, end: 20050531
  5. VASTEN [Suspect]
     Indication: ILL-DEFINED DISORDER
     Dosage: 20 MG, 1X/DAY
     Route: 048
     Dates: start: 20050118
  6. THALIDOMIDE [Suspect]
     Indication: ILL-DEFINED DISORDER
     Dosage: 100 MG, 1X/DAY
     Route: 048
     Dates: start: 20050118, end: 20050708
  7. METEOSPASMYL [Concomitant]
     Route: 065
  8. SPASFON [Concomitant]
     Route: 065
  9. DIFFU K [Concomitant]
     Dosage: 1 DF, 3X/DAY
     Route: 065
     Dates: start: 20050524

REACTIONS (10)
  - Pancytopenia [Not Recovered/Not Resolved]
  - Renal failure acute [Not Recovered/Not Resolved]
  - Neuropathy peripheral [Not Recovered/Not Resolved]
  - Tachypnoea [Not Recovered/Not Resolved]
  - Asthenia [Not Recovered/Not Resolved]
  - Dyspnoea [Not Recovered/Not Resolved]
  - General physical health deterioration [Not Recovered/Not Resolved]
  - Decreased appetite [Not Recovered/Not Resolved]
  - Vomiting [Not Recovered/Not Resolved]
  - Culture urine positive [Not Recovered/Not Resolved]
